FAERS Safety Report 19064296 (Version 4)
Quarter: 2021Q3

REPORT INFORMATION
  Report Type: Report from Study
  Country: US (occurrence: US)
  Receive Date: 20210326
  Receipt Date: 20210713
  Transmission Date: 20211014
  Serious: No
  Sender: FDA-Public Use
  Company Number: NVSC2021US067541

PATIENT
  Sex: Female

DRUGS (2)
  1. COSENTYX [Suspect]
     Active Substance: SECUKINUMAB
     Dosage: 300 MG, QMO (BENEATH THE SKIN,USUALLY VIA INJECTION)
     Route: 058
  2. COSENTYX [Suspect]
     Active Substance: SECUKINUMAB
     Indication: PSORIATIC ARTHROPATHY
     Dosage: 150 MG, QW (BENEATH THE SKIN,USUALLY VIA INJECTION)
     Route: 058

REACTIONS (7)
  - Swelling [Unknown]
  - Oedema [Unknown]
  - Fatigue [Unknown]
  - Excessive cerumen production [Unknown]
  - Exposure to radiation [Unknown]
  - Drug ineffective [Unknown]
  - Peripheral swelling [Unknown]
